FAERS Safety Report 8388767-1 (Version None)
Quarter: 2012Q2

REPORT INFORMATION
  Report Type: 
  Country: None (occurrence: None)
  Receive Date: 20120528
  Receipt Date: 20120515
  Transmission Date: 20120825
  Serious: Yes (Other)
  Sender: FDA-Public Use
  Company Number: FR-BRISTOL-MYERS SQUIBB COMPANY-16629727

PATIENT
  Age: 1 Year
  Sex: Female
  Weight: 1 kg

DRUGS (3)
  1. CYTARABINE [Suspect]
  2. ETOPOSIDE [Suspect]
     Dosage: DAYS 8-10
     Route: 064
  3. DAUNORUBICIN HCL [Suspect]

REACTIONS (6)
  - FOETAL GROWTH RESTRICTION [None]
  - ANAEMIA [None]
  - FOETAL DISTRESS SYNDROME [None]
  - SEPSIS [None]
  - PREMATURE BABY [None]
  - LEUKOPENIA [None]
